FAERS Safety Report 23320743 (Version 1)
Quarter: 2023Q4

REPORT INFORMATION
  Report Type: Spontaneous
  Country: PL (occurrence: PL)
  Receive Date: 20231220
  Receipt Date: 20231220
  Transmission Date: 20240110
  Serious: Yes (Hospitalization, Other)
  Sender: FDA-Public Use
  Company Number: PL-GILEAD-2023-0655626

PATIENT
  Age: 41 Year
  Sex: Male

DRUGS (2)
  1. SOFOSBUVIR\VELPATASVIR [Suspect]
     Active Substance: SOFOSBUVIR\VELPATASVIR
     Indication: Product used for unknown indication
     Dosage: UNK
     Route: 065
     Dates: start: 202004
  2. GLECAPREVIR\PIBRENTASVIR [Concomitant]
     Active Substance: GLECAPREVIR\PIBRENTASVIR
     Indication: Hepatitis C
     Dosage: UNK
     Route: 065
     Dates: start: 202107, end: 202109

REACTIONS (5)
  - Hepatitis C [Recovered/Resolved]
  - Pancreatitis [Unknown]
  - Anal fistula [Recovered/Resolved]
  - Mental disorder [Recovering/Resolving]
  - Drug ineffective [Unknown]
